FAERS Safety Report 10732737 (Version 1)
Quarter: 2015Q1

REPORT INFORMATION
  Report Type: Spontaneous
  Country: KP (occurrence: KP)
  Receive Date: 20150123
  Receipt Date: 20150123
  Transmission Date: 20150721
  Serious: Yes (Other)
  Sender: FDA-Public Use
  Company Number: KP-CIPLA LTD.-2015KP00457

PATIENT

DRUGS (4)
  1. ZIDOVUDINE. [Suspect]
     Active Substance: ZIDOVUDINE
     Indication: HIV INFECTION
     Dosage: UNK
     Dates: start: 200601
  2. KOREAN RED GINSENG [Suspect]
     Active Substance: DIETARY SUPPLEMENT
     Indication: HIV INFECTION
     Dosage: 600 G
  3. LAMIVUDINE. [Suspect]
     Active Substance: LAMIVUDINE
     Indication: HIV INFECTION
     Dosage: UNK
     Dates: start: 200601
  4. LOPINAVIR + RITONAVIR 133.3/ 33.3 MG [Suspect]
     Active Substance: LOPINAVIR\RITONAVIR
     Indication: HIV INFECTION
     Dosage: UNK
     Dates: start: 200601

REACTIONS (4)
  - Herpes zoster [Unknown]
  - Cerebral haemorrhage [Unknown]
  - Oral candidiasis [Unknown]
  - Lymphoma [Unknown]

NARRATIVE: CASE EVENT DATE: 199910
